FAERS Safety Report 16262245 (Version 1)
Quarter: 2019Q2

REPORT INFORMATION
  Report Type: Spontaneous
  Country: US (occurrence: US)
  Receive Date: 20190501
  Receipt Date: 20190501
  Transmission Date: 20190711
  Serious: Yes (Hospitalization)
  Sender: FDA-Public Use
  Company Number: US-MALLINCKRODT-T201903220

PATIENT
  Sex: Female
  Weight: 59 kg

DRUGS (2)
  1. H.P. ACTHAR [Suspect]
     Active Substance: CORTICOTROPIN
     Indication: RHEUMATOID ARTHRITIS
     Dosage: 80 UNITS (1 ML) ONCE EVERY 72 HOURS
     Route: 058
     Dates: start: 2017
  2. H.P. ACTHAR [Suspect]
     Active Substance: CORTICOTROPIN
     Indication: ANAEMIA

REACTIONS (2)
  - Atrial fibrillation [Unknown]
  - Atrial flutter [Unknown]

NARRATIVE: CASE EVENT DATE: 2019
